FAERS Safety Report 16651083 (Version 1)
Quarter: 2019Q3

REPORT INFORMATION
  Report Type: Spontaneous
  Country: JP (occurrence: JP)
  Receive Date: 20190731
  Receipt Date: 20190731
  Transmission Date: 20191004
  Serious: Yes (Other)
  Sender: FDA-Public Use
  Company Number: JP-MYLANLABS-2019M1071045

PATIENT
  Age: 8 Year
  Sex: Male

DRUGS (3)
  1. PREDNISOLONE. [Suspect]
     Active Substance: PREDNISOLONE
     Indication: FAMILIAL MEDITERRANEAN FEVER
     Dosage: GIVEN 1-2 TIMES FOR A SINGLE EPISODE
     Route: 048
  2. COLCHICINE. [Suspect]
     Active Substance: COLCHICINE
     Indication: FAMILIAL MEDITERRANEAN FEVER
     Dosage: 0.02 MILLIGRAM/KILOGRAM
     Route: 065
  3. COLCHICINE. [Suspect]
     Active Substance: COLCHICINE
     Dosage: 0.03 MILLIGRAM/KILOGRAM
     Route: 065

REACTIONS (1)
  - Drug ineffective [Unknown]
